FAERS Safety Report 12708003 (Version 2)
Quarter: 2017Q2

REPORT INFORMATION
  Report Type: Spontaneous
  Country: TW (occurrence: TW)
  Receive Date: 20160901
  Receipt Date: 20170425
  Transmission Date: 20170830
  Serious: Yes (Death, Hospitalization)
  Sender: FDA-Public Use
  Company Number: TW-AMGEN-TWNSP2016113208

PATIENT
  Age: 60 Year
  Sex: Female

DRUGS (2)
  1. NESP [Suspect]
     Active Substance: DARBEPOETIN ALFA
     Indication: NEPHROGENIC ANAEMIA
     Dosage: 20 MUG, QWK
     Route: 058
     Dates: start: 201606, end: 20160713
  2. NESP [Suspect]
     Active Substance: DARBEPOETIN ALFA
     Indication: NEPHROGENIC ANAEMIA

REACTIONS (7)
  - Ileus [Fatal]
  - Thrombosis [Unknown]
  - Sepsis [Fatal]
  - Abdominal pain [Unknown]
  - Gastrointestinal necrosis [Unknown]
  - Arrhythmia [Unknown]
  - Death [Fatal]

NARRATIVE: CASE EVENT DATE: 20160713
